FAERS Safety Report 7090186-5 (Version None)
Quarter: 2010Q4

REPORT INFORMATION
  Report Type: 
  Country: None (occurrence: None)
  Receive Date: 20101104
  Receipt Date: 20101104
  Transmission Date: 20110411
  Serious: Yes (Hospitalization)
  Sender: FDA-Public Use
  Company Number: None

PATIENT
  Sex: Male
  Weight: 86.4 kg

DRUGS (2)
  1. FLEBOGAMMA 5% [Suspect]
     Indication: POLYNEUROPATHY
     Dosage: FLEBOGAM 5% 20GM (2) 20GM/400ML DAILY TIMES 5DAY IV
     Route: 042
     Dates: start: 20100923
  2. FLEBOGAMMA [Suspect]
     Dosage: FLEBOGAM 5% 10GM IN 400ML DAILY TIMES 5 DA IV
     Route: 042

REACTIONS (2)
  - HAEMATURIA [None]
  - RENAL FAILURE ACUTE [None]
